FAERS Safety Report 19203877 (Version 16)
Quarter: 2022Q4

REPORT INFORMATION
  Report Type: Report from Study
  Country: CO (occurrence: CO)
  Receive Date: 20210503
  Receipt Date: 20221227
  Transmission Date: 20230112
  Serious: Yes (Disabling, Other)
  Sender: FDA-Public Use
  Company Number: CO-AMGEN-COLSL2021064819

PATIENT
  Age: 49 Year
  Sex: Female

DRUGS (5)
  1. VECTIBIX [Suspect]
     Active Substance: PANITUMUMAB
     Indication: Colorectal cancer metastatic
     Dosage: 100 MILLIGRAM, Q2WK
     Route: 042
     Dates: start: 20210331
  2. VECTIBIX [Suspect]
     Active Substance: PANITUMUMAB
     Dosage: 100 MILLIGRAM, EVERY 15 DAYS
     Route: 042
     Dates: start: 20220216
  3. VECTIBIX [Suspect]
     Active Substance: PANITUMUMAB
     Dosage: 100 MILLIGRAM, Q2WK
     Route: 042
     Dates: start: 20220418
  4. POLYVINYL ALCOHOL\POVIDONE [Concomitant]
     Active Substance: POLYVINYL ALCOHOL\POVIDONE
     Dosage: 1 BOTTLE (APPLY 1 DROP IN EACH EYE EVERY 12 HOURS)
     Dates: start: 20210526
  5. ARTIFICIAL TEARS [Concomitant]
     Active Substance: GLYCERIN\HYPROMELLOSES\POLYETHYLENE GLYCOL 400
     Indication: Product used for unknown indication
     Dosage: UNK UNK, Q12H (APPLY ONE DROP IN EACH EYE EVERY 12 HOURS )
     Route: 061

REACTIONS (22)
  - Oropharyngeal blistering [Not Recovered/Not Resolved]
  - Skin disorder [Not Recovered/Not Resolved]
  - Conjunctivitis [Not Recovered/Not Resolved]
  - Rash [Not Recovered/Not Resolved]
  - Eye pruritus [Not Recovered/Not Resolved]
  - Device related infection [Recovering/Resolving]
  - Device physical property issue [Unknown]
  - Peripheral swelling [Not Recovered/Not Resolved]
  - Joint swelling [Not Recovered/Not Resolved]
  - Tongue blistering [Not Recovered/Not Resolved]
  - Skin reaction [Not Recovered/Not Resolved]
  - Dry mouth [Not Recovered/Not Resolved]
  - Pruritus [Unknown]
  - Eye irritation [Not Recovered/Not Resolved]
  - Acne [Not Recovered/Not Resolved]
  - Product dose omission issue [Unknown]
  - Pulmonary mass [Not Recovered/Not Resolved]
  - Inflammation [Recovered/Resolved]
  - Dental care [Unknown]
  - Eye pain [Not Recovered/Not Resolved]
  - Eye allergy [Not Recovered/Not Resolved]
  - Scratch [Not Recovered/Not Resolved]

NARRATIVE: CASE EVENT DATE: 20210101
